FAERS Safety Report 18923153 (Version 6)
Quarter: 2022Q2

REPORT INFORMATION
  Report Type: Spontaneous
  Country: IL (occurrence: IL)
  Receive Date: 20210222
  Receipt Date: 20220418
  Transmission Date: 20220721
  Serious: No
  Sender: FDA-Public Use
  Company Number: IL-PFIZER INC-2021137773

PATIENT
  Age: 23 Year
  Sex: Male

DRUGS (1)
  1. ENBREL [Suspect]
     Active Substance: ETANERCEPT
     Indication: Rheumatoid arthritis
     Dosage: 50 MG, WEEKLY
     Route: 058

REACTIONS (3)
  - Accidental exposure to product [Unknown]
  - Device leakage [Unknown]
  - Device issue [Unknown]
